FAERS Safety Report 4289662-X (Version None)
Quarter: 2004Q1

REPORT INFORMATION
  Report Type: 
  Country: None (occurrence: None)
  Receive Date: 20040206
  Receipt Date: 20040126
  Transmission Date: 20041129
  Serious: Yes (Disabling, Other)
  Sender: FDA-Public Use
  Company Number: THQ2004A00154

PATIENT
  Age: 68 Year
  Sex: Female

DRUGS (5)
  1. ACTOS [Suspect]
     Indication: DIABETES MELLITUS
     Dosage: 30 MG (1 D)
     Route: 048
     Dates: start: 20030702
  2. GLICLAZIDE (GLICLAZIDE) [Suspect]
     Dosage: 80 MG (1 D)
     Route: 048
     Dates: start: 20030407
  3. DIGOXIN [Concomitant]
  4. METOPROLOL SUCCINATE [Concomitant]
  5. ACENOCOUMAROL (ACENOCOUMAROL) [Concomitant]

REACTIONS (1)
  - DEMENTIA ALZHEIMER'S TYPE [None]
